FAERS Safety Report 19624001 (Version 1)
Quarter: 2021Q3

REPORT INFORMATION
  Report Type: Other
  Country: BE (occurrence: BE)
  Receive Date: 20210729
  Receipt Date: 20210729
  Transmission Date: 20211014
  Serious: Yes (Hospitalization)
  Sender: FDA-Public Use
  Company Number: BE-CELLTRION INC.-2021BE009813

PATIENT

DRUGS (2)
  1. OCREVUS [Suspect]
     Active Substance: OCRELIZUMAB
     Indication: PRIMARY PROGRESSIVE MULTIPLE SCLEROSIS
     Dosage: LAST OCREVUS INFUSION WAS DONE IN /JAN/2021
     Route: 042
  2. RITUXIMAB (UNKNOWN) [Suspect]
     Active Substance: RITUXIMAB
     Indication: PRIMARY PROGRESSIVE MULTIPLE SCLEROSIS
     Dosage: 1000 MG
     Route: 041
     Dates: start: 20200630

REACTIONS (6)
  - Atrial fibrillation [Recovering/Resolving]
  - Ischaemic stroke [Recovering/Resolving]
  - Off label use [Unknown]
  - Transient ischaemic attack [Recovering/Resolving]
  - Deformity [Recovering/Resolving]
  - Fall [Unknown]

NARRATIVE: CASE EVENT DATE: 20210205
